FAERS Safety Report 6162165-3 (Version None)
Quarter: 2009Q2

REPORT INFORMATION
  Report Type: 
  Country: None (occurrence: None)
  Receive Date: 20090417
  Receipt Date: 20090407
  Transmission Date: 20091009
  Serious: Yes (Other)
  Sender: FDA-Public Use
  Company Number: 2009-01392

PATIENT

DRUGS (7)
  1. VELCADE [Suspect]
     Indication: MULTIPLE MYELOMA
     Dosage: INTRAVENOUS
     Route: 042
  2. AMLOPIN (AMLODIPINE BESILATE) [Concomitant]
  3. CILAZAPRIL (CILAZAPRIL) [Concomitant]
  4. PROPAFEN (PROPAFEONE) [Concomitant]
  5. SALMETEROL (SALMETEROL) [Concomitant]
  6. BECLOFORTE (BECLOMETASONE DIPROPIONATE) [Concomitant]
  7. PRESOLOL (LABETALOL HYDROCHLORIDE) [Concomitant]

REACTIONS (3)
  - ANGINA PECTORIS [None]
  - PNEUMONIA [None]
  - TACHYCARDIA [None]
